FAERS Safety Report 6736023-7 (Version None)
Quarter: 2010Q2

REPORT INFORMATION
  Report Type: 
  Country: None (occurrence: None)
  Receive Date: 20100521
  Receipt Date: 20100513
  Transmission Date: 20101027
  Serious: Yes (Hospitalization, Other)
  Sender: FDA-Public Use
  Company Number: US-AMGEN-QUU401345

PATIENT
  Sex: Male
  Weight: 93.1 kg

DRUGS (11)
  1. NPLATE [Suspect]
     Indication: IDIOPATHIC THROMBOCYTOPENIC PURPURA
     Route: 058
     Dates: start: 20090327, end: 20090423
  2. CORTICOSTEROIDS [Concomitant]
     Dates: start: 20080126
  3. IMMU-G [Concomitant]
     Dates: start: 20080127
  4. FOLIC ACID [Concomitant]
  5. NEBIVOLOL [Concomitant]
  6. GABAPENTIN [Concomitant]
  7. DANAZOL [Concomitant]
  8. LOTREL [Concomitant]
  9. ASPIRIN [Concomitant]
  10. VITAMIN D [Concomitant]
  11. RITUXAN [Concomitant]
     Dates: start: 20090417

REACTIONS (4)
  - DRUG INEFFECTIVE [None]
  - GASTROINTESTINAL HAEMORRHAGE [None]
  - HELICOBACTER INFECTION [None]
  - HYPERTENSION [None]
